FAERS Safety Report 10252983 (Version 5)
Quarter: 2015Q1

REPORT INFORMATION
  Report Type: Report from Study
  Country: US (occurrence: US)
  Receive Date: 20140623
  Receipt Date: 20150123
  Transmission Date: 20150720
  Serious: Yes (Hospitalization, Other)
  Sender: FDA-Public Use
  Company Number: US-ACTELION-A-US2014-100555

PATIENT
  Age: 67 Year
  Sex: Male

DRUGS (3)
  1. VELETRI [Suspect]
     Active Substance: EPOPROSTENOL
     Indication: COR PULMONALE CHRONIC
     Dosage: 26 NG/KG, PER MIN
     Route: 042
     Dates: start: 20110118
  2. LETAIRIS [Concomitant]
     Active Substance: AMBRISENTAN
  3. LASIX [Concomitant]
     Active Substance: FUROSEMIDE

REACTIONS (8)
  - Renal impairment [Unknown]
  - Fluid retention [Unknown]
  - Eosinophilic pneumonia [Unknown]
  - Blood creatinine increased [Unknown]
  - Right ventricular failure [Unknown]
  - Pericardial effusion [Unknown]
  - Renal failure [Unknown]
  - Localised oedema [Unknown]

NARRATIVE: CASE EVENT DATE: 20140610
